FAERS Safety Report 7220548-4 (Version None)
Quarter: 2011Q1

REPORT INFORMATION
  Report Type: 
  Country: None (occurrence: None)
  Receive Date: 20110111
  Receipt Date: 20101221
  Transmission Date: 20110831
  Serious: No
  Sender: FDA-Public Use
  Company Number: US-B.I. PHARMACEUTICALS,INC./RIDGEFIELD-2010-BP-15211BP

PATIENT
  Sex: Female

DRUGS (6)
  1. PRADAXA [Suspect]
     Indication: ATRIAL FIBRILLATION
     Dosage: 300 MG
     Route: 048
     Dates: start: 20101201
  2. VERAPAMIL [Concomitant]
     Indication: HYPERTENSION
  3. CRESTOR [Concomitant]
     Indication: BLOOD CHOLESTEROL INCREASED
  4. DEXILANT [Concomitant]
     Indication: BARRETT'S OESOPHAGUS
  5. JANUVIA [Concomitant]
     Indication: DIABETES MELLITUS
  6. METFORMIN [Concomitant]
     Indication: DIABETES MELLITUS

REACTIONS (8)
  - SOMNOLENCE [None]
  - DIZZINESS [None]
  - ASTHENIA [None]
  - CHEST PAIN [None]
  - DIARRHOEA [None]
  - CONFUSIONAL STATE [None]
  - HYPERSOMNIA [None]
  - CHROMATURIA [None]
